FAERS Safety Report 9881327 (Version 1)
Quarter: 2014Q1

REPORT INFORMATION
  Report Type: Spontaneous
  Country: PE (occurrence: PE)
  Receive Date: 20140207
  Receipt Date: 20140207
  Transmission Date: 20141002
  Serious: Yes (Hospitalization, Other)
  Sender: FDA-Public Use
  Company Number: PE-PFIZER INC-2014029701

PATIENT
  Age: 74 Year
  Sex: Female

DRUGS (2)
  1. CELEBREX [Suspect]
     Dosage: UNK
     Route: 048
  2. NEURONTIN [Suspect]
     Route: 048

REACTIONS (4)
  - Hiatus hernia [Unknown]
  - Pulmonary thrombosis [Unknown]
  - Neuralgia [Unknown]
  - Urinary tract infection [Unknown]
